FAERS Safety Report 26005729 (Version 1)
Quarter: 2025Q4

REPORT INFORMATION
  Report Type: Report from Study
  Country: CA (occurrence: CA)
  Receive Date: 20251106
  Receipt Date: 20251106
  Transmission Date: 20260118
  Serious: Yes (Other)
  Sender: TEVA
  Company Number: CA-TEVA-VS-3388076

PATIENT
  Age: 32 Year
  Sex: Female

DRUGS (3)
  1. CLONIDINE [Suspect]
     Active Substance: CLONIDINE
     Indication: Hypertension
     Route: 065
  2. DAYVIGO [Concomitant]
     Active Substance: LEMBOREXANT
     Indication: Insomnia
  3. GLATIRAMER ACETATE [Suspect]
     Active Substance: GLATIRAMER ACETATE
     Indication: Relapsing-remitting multiple sclerosis
     Dosage: DOSE FORM: SOLUTION SUBCUTANEOUS, GLATECT PRE-FILLED SYRINGE
     Route: 058

REACTIONS (11)
  - Multiple sclerosis relapse [Not Recovered/Not Resolved]
  - Injection site urticaria [Not Recovered/Not Resolved]
  - Inappropriate schedule of product administration [Not Recovered/Not Resolved]
  - Insomnia [Not Recovered/Not Resolved]
  - Dry mouth [Not Recovered/Not Resolved]
  - Lack of concomitant drug effect [Not Recovered/Not Resolved]
  - Weight increased [Not Recovered/Not Resolved]
  - Hypernatraemia [Not Recovered/Not Resolved]
  - Constipation [Not Recovered/Not Resolved]
  - Injection site pain [Not Recovered/Not Resolved]
  - Abdominal distension [Not Recovered/Not Resolved]
